FAERS Safety Report 6998068-1 (Version None)
Quarter: 2010Q3

REPORT INFORMATION
  Report Type: 
  Country: None (occurrence: None)
  Receive Date: 20100920
  Receipt Date: 20070605
  Transmission Date: 20110219
  Serious: Yes (Other)
  Sender: FDA-Public Use
  Company Number: US-ASTRAZENECA-2006UW24216

PATIENT
  Age: 21061 Day
  Sex: Female
  Weight: 78.9 kg

DRUGS (11)
  1. SEROQUEL [Suspect]
     Dosage: 100-150 MG
     Route: 048
     Dates: start: 19990101
  2. ABILIFY [Concomitant]
     Dates: start: 20060101, end: 20070101
  3. RISPERDAL [Concomitant]
  4. ZYPREXA [Concomitant]
  5. LEXAPRO [Concomitant]
  6. SYNTHROID [Concomitant]
     Dosage: 0.025-0.1 MG
     Route: 048
     Dates: start: 19970603
  7. KLONOPIN [Concomitant]
     Dosage: 0.5-1.5 MG
     Route: 048
     Dates: start: 19970611
  8. EFFEXOR [Concomitant]
     Dosage: 75-300 MG
     Dates: start: 19970611
  9. XANAX [Concomitant]
     Dosage: 0.25-2.5 MG
     Route: 048
     Dates: start: 19991203
  10. ATIVAN [Concomitant]
     Indication: ANXIETY
     Route: 048
     Dates: start: 20000823
  11. VISTARIL [Concomitant]
     Dosage: 45-75 MG
     Dates: start: 19990818

REACTIONS (6)
  - DIABETES MELLITUS [None]
  - GLUCOSE TOLERANCE IMPAIRED [None]
  - HYPERGLYCAEMIA [None]
  - HYPOGLYCAEMIA [None]
  - TARDIVE DYSKINESIA [None]
  - TYPE 2 DIABETES MELLITUS [None]
